FAERS Safety Report 5556174-2 (Version None)
Quarter: 2007Q4

REPORT INFORMATION
  Report Type: 
  Country: None (occurrence: None)
  Receive Date: 20071211
  Receipt Date: 20071126
  Transmission Date: 20080405
  Serious: Yes (Hospitalization, Disabling)
  Sender: FDA-Public Use
  Company Number: DSU-2007-00916

PATIENT
  Age: 68 Year
  Sex: Female

DRUGS (8)
  1. WELCHOL [Suspect]
     Indication: HYPERLIPIDAEMIA
     Dosage: PER ORAL
     Route: 048
     Dates: start: 20070101, end: 20070101
  2. MIDRIN (PARACETAMOL, DICHLORALPHENAZONE, ISOMETHEPTENE) (PARACETAMOL, [Concomitant]
  3. FISH OIL (FISH OIL) (FISH OIL) [Concomitant]
  4. LEVOTHYROXINE (LEVOTHYROXINE) (LEVOTHYROXINE) [Concomitant]
  5. POTASSIUM (POTASSIUM) (POTASSIUM) [Concomitant]
  6. LASIX [Concomitant]
  7. LEXAPRO (ESCITALOPRAM OXALATE) (ESCITALOPRAM OXALATE) [Concomitant]
  8. MECLIZINE (MECLOZINE) (MECLOZINE) [Concomitant]

REACTIONS (8)
  - ABDOMINAL PAIN [None]
  - CONDITION AGGRAVATED [None]
  - CONSTIPATION [None]
  - DIVERTICULUM [None]
  - DRUG INEFFECTIVE [None]
  - IRRITABLE BOWEL SYNDROME [None]
  - MUSCLE INJURY [None]
  - MYOPATHY [None]
